FAERS Safety Report 24327037 (Version 1)
Quarter: 2024Q3

REPORT INFORMATION
  Report Type: Spontaneous
  Country: US (occurrence: None)
  Receive Date: 20240916
  Receipt Date: 20240916
  Transmission Date: 20241017
  Serious: Yes (Death)
  Sender: Public
  Company Number: None

PATIENT
  Age: 78 Year
  Sex: Male

DRUGS (1)
  1. COTELLIC [Suspect]
     Active Substance: COBIMETINIB
     Indication: Metabolic disorder
     Dosage: FREQUENCY : DAILY;?
     Dates: start: 20240210, end: 20240520

REACTIONS (1)
  - Death [None]

NARRATIVE: CASE EVENT DATE: 20240814
